FAERS Safety Report 7585081-9 (Version None)
Quarter: 2011Q2

REPORT INFORMATION
  Report Type: 
  Country: None (occurrence: None)
  Receive Date: 20110630
  Receipt Date: 20110622
  Transmission Date: 20111010
  Serious: Yes (Hospitalization)
  Sender: FDA-Public Use
  Company Number: US-AMGEN-KDC424806

PATIENT
  Age: 49 Year
  Sex: Female

DRUGS (7)
  1. PEGFILGRASTIM [Suspect]
     Indication: BREAST CANCER
     Dosage: 6 MG, UNK
     Route: 058
     Dates: start: 20090722
  2. CYCLOPHOSPHAMIDE [Concomitant]
     Indication: BREAST CANCER
     Dosage: UNK
     Route: 042
     Dates: start: 20090722
  3. FILGRASTIM [Suspect]
     Indication: BREAST CANCER
     Dosage: 5 A?G/KG, UNK
     Route: 058
     Dates: start: 20090722
  4. DOXORUBICIN HCL [Concomitant]
     Indication: BREAST CANCER
     Dosage: UNK
     Route: 050
     Dates: start: 20090722
  5. LISINOPRIL [Concomitant]
     Dosage: UNK
     Route: 065
  6. BEVACIZUMAB [Concomitant]
     Indication: BREAST CANCER
     Dosage: UNK UNK, BLINDED
     Route: 042
     Dates: start: 20090722
  7. PACLITAXEL [Concomitant]
     Indication: BREAST CANCER
     Dosage: UNK
     Route: 042
     Dates: start: 20090722

REACTIONS (5)
  - THROMBOSIS [None]
  - SEPTIC SHOCK [None]
  - CHOLECYSTITIS INFECTIVE [None]
  - PULMONARY EMBOLISM [None]
  - BILIARY TRACT INFECTION [None]
